FAERS Safety Report 8522169-X (Version None)
Quarter: 2012Q3

REPORT INFORMATION
  Report Type: 
  Country: None (occurrence: None)
  Receive Date: 20120719
  Receipt Date: 20120706
  Transmission Date: 20120928
  Serious: Yes (Death)
  Sender: FDA-Public Use
  Company Number: GB-FRI-1000037143

PATIENT
  Age: 45 Year
  Sex: Male
  Weight: 104.2 kg

DRUGS (4)
  1. ARIPIPRAZOLE [Suspect]
     Indication: SCHIZOPHRENIA
     Dosage: 10MG DAILY
     Route: 048
  2. MIRTAZAPINE [Suspect]
     Indication: DEPRESSED MOOD
     Dosage: 30MG DAILY
     Route: 048
  3. CITALOPRAM HYDROBROMIDE [Suspect]
     Indication: DEPRESSED MOOD
     Dosage: 40MG DAILY
     Route: 048
  4. CLOZAPINE [Suspect]
     Indication: SCHIZOPHRENIA
     Dosage: 450MG DAILY
     Route: 048

REACTIONS (1)
  - DEATH [None]
